FAERS Safety Report 9924424 (Version 3)
Quarter: 2014Q1

REPORT INFORMATION
  Report Type: Spontaneous
  Country: US (occurrence: None)
  Receive Date: 20140220
  Receipt Date: 20140321
  Transmission Date: 20141002
  Serious: Yes (Other)
  Sender: FDA-Public Use
  Company Number: AUR-APL-2014-01666

PATIENT
  Age: 6 Year
  Sex: Female
  Weight: 18.6 kg

DRUGS (1)
  1. CEFDINIR (CEFDINIR) [Suspect]
     Indication: STREPTOCOCCAL INFECTION
     Dosage: 1 TEASPOON A DAY
     Dates: start: 20140130, end: 20140201

REACTIONS (10)
  - Pyrexia [None]
  - Chills [None]
  - Malaise [None]
  - Pain [None]
  - Discomfort [None]
  - Decreased appetite [None]
  - Diarrhoea [None]
  - Muscle spasms [None]
  - Ear infection [None]
  - Tympanic membrane perforation [None]
